FAERS Safety Report 6227919 (Version 2)
Quarter: 2020Q3

REPORT INFORMATION
  Report Type: Spontaneous
  Country: CZ (occurrence: CZ)
  Receive Date: 20070131
  Receipt Date: 20070131
  Transmission Date: 20201105
  Serious: Yes (Other)
  Sender: FDA-Public Use
  Company Number: CZ-ROCHE-475110

PATIENT
  Age: 65 Year
  Sex: Male
  Weight: 75 kg

DRUGS (5)
  1. TRAMADOL HYDROCHLORIDE. [Concomitant]
     Active Substance: TRAMADOL HYDROCHLORIDE
     Indication: PAIN
  2. ZOMETA [Concomitant]
     Active Substance: ZOLEDRONIC ACID
     Indication: PLASMA CELL MYELOMA
     Dates: start: 20050315, end: 20060815
  3. IBANDRONIC ACID. [Suspect]
     Active Substance: IBANDRONIC ACID
     Indication: PLASMA CELL MYELOMA
     Dosage: DOSAGE REGIMEN REPORTED AS 6 MG/3?4 WEEKS. PATIENT HAD THREE ADMINISTRATION (THE FIRST ADMINISTRATI+
     Route: 042
     Dates: start: 20060915, end: 20061115
  4. ROFERON?A [Concomitant]
     Active Substance: INTERFERON ALFA-2A
     Indication: TRANSPLANT
     Dosage: THERAPY STARTED AFTER TRANSPLANT SURGERY ON 19 AUG 2005
     Dates: start: 20050815, end: 20061212
  5. PERINDOPRIL [Concomitant]
     Active Substance: PERINDOPRIL
     Indication: HYPERTENSION

REACTIONS (1)
  - Osteonecrosis [Recovering/Resolving]

NARRATIVE: CASE EVENT DATE: 20061101
